FAERS Safety Report 11021095 (Version 2)
Quarter: 2015Q2

REPORT INFORMATION
  Report Type: Report from Study
  Country: IL (occurrence: IL)
  Receive Date: 20150413
  Receipt Date: 20150508
  Transmission Date: 20150821
  Serious: Yes (Death, Hospitalization, Other)
  Sender: FDA-Public Use
  Company Number: IL-AMGEN-ISRSL2015033939

PATIENT
  Age: 96 Year
  Sex: Male

DRUGS (1)
  1. NPLATE [Suspect]
     Active Substance: ROMIPLOSTIM
     Indication: IMMUNE THROMBOCYTOPENIC PURPURA
     Dosage: 150 MUG, QWK
     Route: 058
     Dates: start: 20140220, end: 20150326

REACTIONS (5)
  - Wound infection [Unknown]
  - Localised infection [Unknown]
  - Septic shock [Unknown]
  - Sepsis [Fatal]
  - Unevaluable event [Unknown]

NARRATIVE: CASE EVENT DATE: 20150331
